FAERS Safety Report 23668013 (Version 1)
Quarter: 2024Q1

REPORT INFORMATION
  Report Type: Spontaneous
  Country: US (occurrence: None)
  Receive Date: 20240322
  Receipt Date: 20240322
  Transmission Date: 20240410
  Serious: No
  Sender: FDA-Public Use
  Company Number: None

PATIENT
  Age: 74 Year
  Sex: Female
  Weight: 60.75 kg

DRUGS (8)
  1. AJOVY [Suspect]
     Active Substance: FREMANEZUMAB-VFRM
     Indication: Dizziness
     Dosage: OTHER QUANTITY : 675 MG;?OTHER FREQUENCY : EVERY 3 MONTHS;?
     Route: 058
     Dates: start: 20240214, end: 20240215
  2. AJOVY [Suspect]
     Active Substance: FREMANEZUMAB-VFRM
     Indication: Migraine
  3. ESTRADIOL [Concomitant]
     Active Substance: ESTRADIOL
  4. Flaxseed oil capsules 1200 mg bid [Concomitant]
  5. Vitamin D 50 mcg [Concomitant]
  6. VITAMIN B COMPLEX [Concomitant]
     Active Substance: CYANOCOBALAMIN\DEXPANTHENOL\NIACINAMIDE\PYRIDOXINE HYDROCHLORIDE\RIBOFLAVIN 5^-PHOSPHATE SODIUM\THIA
  7. Estroven supplement [Concomitant]
  8. Pantoprazole 40 mg [Concomitant]

REACTIONS (9)
  - Flushing [None]
  - Hyperhidrosis [None]
  - Palpitations [None]
  - Nightmare [None]
  - Abnormal dreams [None]
  - Pruritus [None]
  - Pruritus [None]
  - Headache [None]
  - Blood pressure increased [None]

NARRATIVE: CASE EVENT DATE: 20240214
